FAERS Safety Report 24553530 (Version 1)
Quarter: 2024Q4

REPORT INFORMATION
  Report Type: Report from Study
  Country: US (occurrence: US)
  Receive Date: 20241028
  Receipt Date: 20241028
  Transmission Date: 20250115
  Serious: No
  Sender: ROCHE
  Company Number: US-ROCHE-3503611

PATIENT
  Age: 16 Year
  Sex: Male

DRUGS (1)
  1. NUTROPIN AQ [Suspect]
     Active Substance: SOMATROPIN
     Indication: Hypopituitarism
     Dosage: ONGOING: YES
     Route: 065
     Dates: start: 201709

REACTIONS (4)
  - Device defective [Unknown]
  - Product dose omission issue [Unknown]
  - No adverse event [Unknown]
  - Drug delivery system malfunction [Unknown]

NARRATIVE: CASE EVENT DATE: 20240130
